FAERS Safety Report 10956929 (Version 1)
Quarter: 2015Q1

REPORT INFORMATION
  Report Type: Spontaneous
  Country: US (occurrence: None)
  Receive Date: 20150226
  Receipt Date: 20150226
  Transmission Date: 20150721
  Serious: Yes (Other)
  Sender: FDA-Public Use
  Company Number: TPA2012A01638

PATIENT
  Sex: Female
  Weight: 117.94 kg

DRUGS (3)
  1. METFORMIN [Concomitant]
     Active Substance: METFORMIN HYDROCHLORIDE
  2. ACTOPLUS MET [Suspect]
     Active Substance: METFORMIN HYDROCHLORIDE\PIOGLITAZONE HYDROCHLORIDE
     Indication: TYPE 2 DIABETES MELLITUS
     Dates: start: 200710, end: 201002
  3. GLUCOTROL [Concomitant]
     Active Substance: GLIPIZIDE

REACTIONS (3)
  - Bladder cancer [None]
  - Urinary tract infection [None]
  - Cystitis [None]

NARRATIVE: CASE EVENT DATE: 20110623
